FAERS Safety Report 13748366 (Version 1)
Quarter: 2017Q3

REPORT INFORMATION
  Report Type: Spontaneous
  Country: US (occurrence: US)
  Receive Date: 20170713
  Receipt Date: 20170713
  Transmission Date: 20171127
  Serious: No
  Sender: FDA-Public Use
  Company Number: US-PFIZER INC-2017301487

PATIENT
  Sex: Male

DRUGS (1)
  1. MEDROL [Suspect]
     Active Substance: METHYLPREDNISOLONE
     Dosage: UNK

REACTIONS (7)
  - Joint range of motion decreased [Unknown]
  - Joint swelling [Unknown]
  - Nodal osteoarthritis [Unknown]
  - Kyphosis [Unknown]
  - Spinal pain [Unknown]
  - Synovitis [Unknown]
  - Pain in extremity [Unknown]
